FAERS Safety Report 13286665 (Version 1)
Quarter: 2017Q1

REPORT INFORMATION
  Report Type: Spontaneous
  Country: US (occurrence: US)
  Receive Date: 20170302
  Receipt Date: 20170302
  Transmission Date: 20170428
  Serious: No
  Sender: FDA-Public Use
  Company Number: US-PFIZER INC-2017081524

PATIENT
  Age: 52 Year
  Sex: Female

DRUGS (4)
  1. RAPAMUNE [Suspect]
     Active Substance: SIROLIMUS
     Dosage: 2 MG, DAILY
     Dates: start: 201610
  2. RAPAMUNE [Suspect]
     Active Substance: SIROLIMUS
     Indication: LYMPHANGIOLEIOMYOMATOSIS
     Dosage: 1 MG, DAILY
  3. TUSSIN /00048102/ [Concomitant]
     Indication: ANTITUSSIVE THERAPY
     Dosage: UNK
  4. TUSSIN /00048102/ [Concomitant]
     Indication: LOWER RESPIRATORY TRACT INFECTION

REACTIONS (1)
  - Mouth ulceration [Recovered/Resolved]
